FAERS Safety Report 7984289-8 (Version None)
Quarter: 2011Q4

REPORT INFORMATION
  Report Type: 
  Country: None (occurrence: None)
  Receive Date: 20111216
  Receipt Date: 20111207
  Transmission Date: 20120403
  Serious: Yes (Hospitalization)
  Sender: FDA-Public Use
  Company Number: JP-JNJFOC-20110709876

PATIENT
  Sex: Female
  Weight: 56 kg

DRUGS (10)
  1. REMICADE [Suspect]
     Indication: CROHN'S DISEASE
     Route: 042
     Dates: start: 20100618
  2. REMICADE [Suspect]
     Dosage: TOTAL NUMBER OF INFUSIONS (9)
     Route: 042
     Dates: start: 20110422
  3. REMICADE [Suspect]
     Route: 042
     Dates: start: 20100702
  4. REMICADE [Suspect]
     Route: 042
     Dates: start: 20100813
  5. REMICADE [Suspect]
     Route: 042
     Dates: start: 20101001
  6. REMICADE [Suspect]
     Route: 042
     Dates: start: 20101203
  7. PENTASA [Concomitant]
     Indication: CROHN'S DISEASE
     Route: 048
  8. REMICADE [Suspect]
     Route: 042
     Dates: start: 20110323
  9. REMICADE [Suspect]
     Route: 042
     Dates: start: 20110128
  10. REMICADE [Suspect]
     Route: 042
     Dates: start: 20110225

REACTIONS (1)
  - PULMONARY TUBERCULOSIS [None]
